FAERS Safety Report 7847205-5 (Version None)
Quarter: 2011Q4

REPORT INFORMATION
  Report Type: 
  Country: None (occurrence: None)
  Receive Date: 20111025
  Receipt Date: 20110808
  Transmission Date: 20120403
  Serious: No
  Sender: FDA-Public Use
  Company Number: US-ALLERGAN-1110657US

PATIENT
  Age: 87 Year
  Sex: Female

DRUGS (2)
  1. REFRESH TEARS [Concomitant]
     Indication: DRY EYE
     Route: 047
  2. FML [Suspect]
     Indication: EYE INFECTION
     Dosage: 1 DF, SINGLE
     Route: 047
     Dates: start: 20110805, end: 20110805

REACTIONS (2)
  - DIZZINESS [None]
  - HEADACHE [None]
